FAERS Safety Report 8260836-6 (Version None)
Quarter: 2012Q2

REPORT INFORMATION
  Report Type: 
  Country: None (occurrence: None)
  Receive Date: 20120402
  Receipt Date: 20120319
  Transmission Date: 20120825
  Serious: Yes (Death, Life-Threatening, Hospitalization, Disabling, Other)
  Sender: FDA-Public Use
  Company Number: 2012MA003667

PATIENT
  Sex: Female
  Weight: 92.9874 kg

DRUGS (52)
  1. NIFEDIPINE [Concomitant]
  2. MEDROL [Concomitant]
  3. FORADIL [Concomitant]
  4. GENTAMICIN [Concomitant]
  5. LEVOFLOXACIN [Concomitant]
  6. THEOPHYLLINE [Concomitant]
  7. SEREVENT [Concomitant]
  8. CEPHALEXIN [Concomitant]
  9. ALLEGRA [Concomitant]
  10. FLOVENT [Concomitant]
  11. ADVAIR DISKUS 100/50 [Concomitant]
  12. MUCINEX [Concomitant]
  13. SPIRIVA [Concomitant]
  14. SOLU-MEDROL [Concomitant]
  15. ZOSYN [Concomitant]
  16. COUMADIN [Concomitant]
  17. LIPITOR [Concomitant]
  18. POTASSIUM CHLORIDE [Concomitant]
  19. PULMICORT [Concomitant]
  20. AVELOX [Concomitant]
  21. VANCOMYCIN [Concomitant]
  22. QUINOLONE [Concomitant]
  23. WARFARIN SODIUM [Concomitant]
  24. AZMACORT [Concomitant]
  25. ALUPENT [Concomitant]
  26. ANTIBIOTIC THERAPY [Concomitant]
  27. LORAZEPAM [Concomitant]
  28. CARTIA XT [Concomitant]
  29. INVANZ [Concomitant]
  30. PRIMAXIN [Concomitant]
  31. PREDNISONE [Concomitant]
  32. VOLMAX [Concomitant]
  33. ALBUTEROL [Concomitant]
  34. CROMOLYN SODIUM [Concomitant]
  35. FLAGYL [Concomitant]
  36. NASAREL [Concomitant]
  37. STEROIDS [Concomitant]
  38. SYNTHROID [Concomitant]
  39. VENTOLIN [Concomitant]
  40. LEVAQUIN [Concomitant]
  41. HUMIBID [Concomitant]
  42. ZYRTEC [Concomitant]
  43. IPRATROPIUM BROMIDE [Concomitant]
  44. NEURONTIN [Concomitant]
  45. DIGOXIN [Suspect]
     Indication: ATRIAL FIBRILLATION
     Dosage: 0.25 MG;QD;PO
     Route: 048
     Dates: start: 20050301, end: 20080101
  46. CEFTIN [Concomitant]
  47. LORAZEPAM [Concomitant]
  48. ATROVENT [Concomitant]
  49. LASIX [Concomitant]
  50. PHENERGAN HCL [Concomitant]
  51. FOSAMAX [Concomitant]
  52. DUONEBS [Concomitant]

REACTIONS (87)
  - PNEUMONIA [None]
  - WEIGHT INCREASED [None]
  - EDENTULOUS [None]
  - HYPOTHYROIDISM [None]
  - OBESITY [None]
  - DECREASED APPETITE [None]
  - SEPTIC SHOCK [None]
  - GINGIVAL INFECTION [None]
  - ATRIAL FIBRILLATION [None]
  - ERYTHEMA [None]
  - CARDIOMEGALY [None]
  - ELECTROCARDIOGRAM ST SEGMENT DEPRESSION [None]
  - PLEURAL EFFUSION [None]
  - PNEUMOTHORAX [None]
  - COLITIS [None]
  - RALES [None]
  - NAUSEA [None]
  - ACUTE PRERENAL FAILURE [None]
  - HYPERHIDROSIS [None]
  - DEPRESSION [None]
  - LUNG NEOPLASM [None]
  - COR PULMONALE [None]
  - DYSPHAGIA [None]
  - ATELECTASIS [None]
  - ISCHAEMIA [None]
  - ELECTROCARDIOGRAM ST-T CHANGE [None]
  - TOXICITY TO VARIOUS AGENTS [None]
  - JAUNDICE [None]
  - ASPIRATION [None]
  - NODULE [None]
  - URINARY TRACT INFECTION [None]
  - PNEUMONITIS [None]
  - CEREBROVASCULAR ACCIDENT [None]
  - HYPOXIA [None]
  - HYPERNATRAEMIA [None]
  - COUGH [None]
  - WHEEZING [None]
  - TENDERNESS [None]
  - CARDIAC FAILURE CONGESTIVE [None]
  - EFFUSION [None]
  - OEDEMA PERIPHERAL [None]
  - MALIGNANT MELANOMA [None]
  - PULMONARY HILUM MASS [None]
  - AORTIC ANEURYSM [None]
  - LEUKOCYTOSIS [None]
  - TROPONIN INCREASED [None]
  - RENAL CYST [None]
  - DYSARTHRIA [None]
  - APHASIA [None]
  - HYPOCHLORAEMIA [None]
  - RENAL FAILURE [None]
  - RHONCHI [None]
  - OEDEMA [None]
  - ANAEMIA [None]
  - METASTATIC NEOPLASM [None]
  - RENAL FAILURE ACUTE [None]
  - DIABETES MELLITUS INADEQUATE CONTROL [None]
  - PAIN IN JAW [None]
  - STRESS [None]
  - HAEMORRHAGE [None]
  - HEPATOSPLENOMEGALY [None]
  - CHRONIC OBSTRUCTIVE PULMONARY DISEASE [None]
  - MICROCYTIC ANAEMIA [None]
  - DYSLIPIDAEMIA [None]
  - DEHYDRATION [None]
  - SWELLING [None]
  - HYPERTROPHY [None]
  - SCAB [None]
  - PULMONARY OEDEMA [None]
  - MASS [None]
  - DIARRHOEA [None]
  - ABDOMINAL DISTENSION [None]
  - SLEEP APNOEA SYNDROME [None]
  - HYPERTENSION [None]
  - PLEURISY [None]
  - ASTHENIA [None]
  - CONTUSION [None]
  - CYANOSIS [None]
  - RESPIRATORY TRACT INFECTION [None]
  - RESPIRATORY FAILURE [None]
  - ATROPHY [None]
  - MASTOIDITIS [None]
  - LOBAR PNEUMONIA [None]
  - DEFORMITY [None]
  - MUSCULOSKELETAL DISCOMFORT [None]
  - NASAL CONGESTION [None]
  - HAEMOPTYSIS [None]
